FAERS Safety Report 5779039-X (Version None)
Quarter: 2008Q2

REPORT INFORMATION
  Report Type: 
  Country: None (occurrence: None)
  Receive Date: 20080617
  Receipt Date: 20071121
  Transmission Date: 20081010
  Serious: Yes (Other)
  Sender: FDA-Public Use
  Company Number: WWISSUE-132

PATIENT
  Sex: Female

DRUGS (1)
  1. BUTALBITAL, ASPIRIN, CAFFEINE 50/325/40 [Suspect]
     Indication: HEADACHE

REACTIONS (2)
  - HEADACHE [None]
  - NAUSEA [None]
